FAERS Safety Report 18348302 (Version 1)
Quarter: 2020Q4

REPORT INFORMATION
  Report Type: Spontaneous
  Country: US (occurrence: US)
  Receive Date: 20201005
  Receipt Date: 20201005
  Transmission Date: 20210114
  Serious: Yes (Other)
  Sender: FDA-Public Use
  Company Number: None

PATIENT
  Age: 21 Year
  Sex: Female
  Weight: 58.5 kg

DRUGS (5)
  1. INSULIN PUMP [DEVICE] [Concomitant]
     Active Substance: DEVICE
  2. INSULIN [Concomitant]
     Active Substance: INSULIN NOS
  3. CRANBERRY. [Concomitant]
     Active Substance: CRANBERRY
  4. VITAMIN C [Concomitant]
     Active Substance: ASCORBIC ACID
  5. HAWAIIAN HAZE CBD 18.9% [Suspect]
     Active Substance: CANNABIDIOL\HERBALS
     Indication: ANXIETY
     Route: 055

REACTIONS (17)
  - Glassy eyes [None]
  - Hallucination [None]
  - Heart rate increased [None]
  - Dry mouth [None]
  - Nausea [None]
  - Tremor [None]
  - Delusion [None]
  - Cognitive disorder [None]
  - Suspected product quality issue [None]
  - Psychotic disorder [None]
  - Visual impairment [None]
  - Crying [None]
  - Amnesia [None]
  - Panic attack [None]
  - Anxiety [None]
  - Loss of consciousness [None]
  - Screaming [None]

NARRATIVE: CASE EVENT DATE: 20201001
